FAERS Safety Report 4803477-2 (Version None)
Quarter: 2005Q4

REPORT INFORMATION
  Report Type: 
  Country: None (occurrence: None)
  Receive Date: 20051019
  Receipt Date: 20050828
  Transmission Date: 20060501
  Serious: Yes (Other)
  Sender: FDA-Public Use
  Company Number: 2005UW14392

PATIENT
  Age: 49 Year
  Sex: Male

DRUGS (2)
  1. CRESTOR [Suspect]
     Indication: BLOOD CHOLESTEROL
     Route: 048
     Dates: start: 20050511, end: 20050805
  2. ASPIRIN [Concomitant]
     Dates: start: 20050101

REACTIONS (6)
  - ABDOMINAL PAIN UPPER [None]
  - ASTHENIA [None]
  - DIZZINESS [None]
  - GASTRODUODENAL ULCER [None]
  - HELICOBACTER GASTRITIS [None]
  - MYALGIA [None]
